FAERS Safety Report 9744627 (Version 2)
Quarter: 2013Q4

REPORT INFORMATION
  Report Type: Spontaneous
  Country: IL (occurrence: IL)
  Receive Date: 20131210
  Receipt Date: 20131210
  Transmission Date: 20140711
  Serious: Yes (Death, Hospitalization)
  Sender: FDA-Public Use
  Company Number: IL-CELGENEUS-082-22393-13100311

PATIENT
  Age: 69 Year
  Sex: Female

DRUGS (1)
  1. ISTODAX [Suspect]
     Indication: PERIPHERAL T-CELL LYMPHOMA UNSPECIFIED
     Route: 065
     Dates: start: 2013

REACTIONS (3)
  - General physical health deterioration [Fatal]
  - Pyrexia [Not Recovered/Not Resolved]
  - Chills [Not Recovered/Not Resolved]
